FAERS Safety Report 4732557-5 (Version None)
Quarter: 2005Q3

REPORT INFORMATION
  Report Type: 
  Country: None (occurrence: None)
  Receive Date: 20050801
  Receipt Date: 20050714
  Transmission Date: 20060218
  Serious: No
  Sender: FDA-Public Use
  Company Number: ENTC2004-0245

PATIENT
  Age: 75 Year
  Sex: Female

DRUGS (12)
  1. STALEVO 100 [Suspect]
     Indication: PARKINSON'S DISEASE
     Dosage: 300 MG, 3 IN 1 D
     Dates: start: 20041101, end: 20041202
  2. MIRAPEX [Concomitant]
  3. SELEGILNE [Concomitant]
  4. HYDROCHLOROTHIAZIDE (TABLET) [Concomitant]
  5. TORSEMIDE [Concomitant]
  6. PROTONIX [Concomitant]
  7. POTASSIUM CHLORIDE [Concomitant]
  8. ASPIRIN [Concomitant]
  9. VITAMIN E [Concomitant]
  10. LAXATIVES [Concomitant]
  11. STOOL SOFTENER [Concomitant]
  12. MULTI-VITAMINS [Concomitant]

REACTIONS (2)
  - MALIGNANT NEOPLASM PROGRESSION [None]
  - TREATMENT NONCOMPLIANCE [None]
